FAERS Safety Report 7669572-8 (Version None)
Quarter: 2011Q3

REPORT INFORMATION
  Report Type: 
  Country: None (occurrence: None)
  Receive Date: 20110808
  Receipt Date: 20110729
  Transmission Date: 20111222
  Serious: Yes (Other)
  Sender: FDA-Public Use
  Company Number: CN-ASTRAZENECA-2011SE45122

PATIENT
  Age: 66 Year
  Sex: Male

DRUGS (2)
  1. LIDOCAINE [Suspect]
     Indication: VENTRICULAR EXTRASYSTOLES
     Route: 042
  2. LIDOCAINE [Suspect]
     Dosage: 2 MG/MIN
     Route: 041

REACTIONS (9)
  - PANIC REACTION [None]
  - URETHRAL SPASM [None]
  - FLUSHING [None]
  - DISORIENTATION [None]
  - PSYCHIATRIC SYMPTOM [None]
  - FEAR [None]
  - URINARY INCONTINENCE [None]
  - RESTLESSNESS [None]
  - AGITATION [None]
